FAERS Safety Report 9565820 (Version 2)
Quarter: 2013Q4

REPORT INFORMATION
  Report Type: Report from Study
  Country: KR (occurrence: KR)
  Receive Date: 20130930
  Receipt Date: 20131003
  Transmission Date: 20140711
  Serious: Yes (Hospitalization)
  Sender: FDA-Public Use
  Company Number: KR-GLAXOSMITHKLINE-Z0021269A

PATIENT
  Age: 66 Year
  Sex: Female
  Weight: 57.8 kg

DRUGS (3)
  1. ELTROMBOPAG [Suspect]
     Indication: THROMBOCYTOPENIA
     Dosage: 100G PER DAY
     Route: 048
     Dates: start: 20130910
  2. CYTARABINE [Suspect]
     Indication: ACUTE MYELOID LEUKAEMIA
     Dosage: 100MGM2 CYCLIC
     Route: 042
     Dates: start: 20130907
  3. DAUNORUBICIN [Suspect]
     Indication: ACUTE MYELOID LEUKAEMIA
     Dosage: 60MGM2 CYCLIC
     Route: 042
     Dates: start: 20130907

REACTIONS (1)
  - Febrile neutropenia [Recovering/Resolving]
